FAERS Safety Report 6325394-1 (Version None)
Quarter: 2009Q3

REPORT INFORMATION
  Report Type: 
  Country: None (occurrence: None)
  Receive Date: 20090824
  Receipt Date: 20090817
  Transmission Date: 20100115
  Serious: Yes (Other)
  Sender: FDA-Public Use
  Company Number: US-AVENTIS-200917354US

PATIENT
  Sex: Female
  Weight: 111.13 kg

DRUGS (3)
  1. LANTUS [Suspect]
     Dosage: DOSE: 90 UNITIS AT NIGHT AND 40-60 UNIT IN MORNING DEPENDING ON BLOOD SUGAR READINGS
     Route: 058
     Dates: start: 20050101
  2. LANTUS [Suspect]
     Route: 058
     Dates: end: 20090101
  3. LIPITOR [Concomitant]
     Dates: start: 20030101, end: 20080101

REACTIONS (4)
  - BLOOD GLUCOSE INCREASED [None]
  - INJECTION SITE PAIN [None]
  - UPPER RESPIRATORY TRACT INFECTION [None]
  - WEIGHT INCREASED [None]
